FAERS Safety Report 5347202-8 (Version None)
Quarter: 2007Q2

REPORT INFORMATION
  Report Type: 
  Country: None (occurrence: None)
  Receive Date: 20070509
  Receipt Date: 20060320
  Transmission Date: 20071010
  Serious: Yes (Hospitalization)
  Sender: FDA-Public Use
  Company Number: PHEH2006US03681

PATIENT
  Age: 34 Year
  Sex: Female

DRUGS (2)
  1. TEGRETOL [Suspect]
     Indication: EPILEPSY
     Dosage: ORAL
     Route: 048
  2. PHENYTOIN [Suspect]
     Indication: EPILEPSY

REACTIONS (3)
  - BRAIN OPERATION [None]
  - CONVULSION [None]
  - DRUG INEFFECTIVE [None]
